FAERS Safety Report 7020428-3 (Version None)
Quarter: 2010Q3

REPORT INFORMATION
  Report Type: 
  Country: None (occurrence: None)
  Receive Date: 20100929
  Receipt Date: 20100920
  Transmission Date: 20110219
  Serious: Yes (Other)
  Sender: FDA-Public Use
  Company Number: SV-JNJFOC-20100903061

PATIENT
  Age: 19 Year
  Sex: Female

DRUGS (3)
  1. INVEGA [Suspect]
     Indication: PRODUCT USED FOR UNKNOWN INDICATION
     Route: 048
  2. DIPHENYLHYDANTOIN [Concomitant]
     Indication: EPILEPSY
  3. CLOBAZAM [Concomitant]
     Indication: EPILEPSY

REACTIONS (1)
  - EPILEPSY [None]
